FAERS Safety Report 9736714 (Version 2)
Quarter: 2013Q4

REPORT INFORMATION
  Report Type: Spontaneous
  Country: US (occurrence: US)
  Receive Date: 20131206
  Receipt Date: 20131206
  Transmission Date: 20140711
  Serious: No
  Sender: FDA-Public Use
  Company Number: US-GILEAD-2009-0023976

PATIENT
  Sex: Female
  Weight: 79.38 kg

DRUGS (15)
  1. LETAIRIS [Suspect]
     Indication: PULMONARY ARTERIAL HYPERTENSION
     Route: 048
     Dates: start: 20090130
  2. OXYGEN [Concomitant]
  3. HUMALOG [Concomitant]
  4. ALBUTEROL [Concomitant]
  5. PRISTIQ [Concomitant]
  6. IPRATROPIUM [Concomitant]
  7. LIPITOR [Concomitant]
  8. LYRICA [Concomitant]
  9. ASMANEX [Concomitant]
  10. LANTUS [Concomitant]
  11. SYMBICORT [Concomitant]
  12. METOCLOPRAMIDE [Concomitant]
  13. METOPROLOL [Concomitant]
  14. MULTIVITAMIN [Concomitant]
  15. MOTILIUM [Concomitant]

REACTIONS (2)
  - Blood glucose fluctuation [Unknown]
  - Anaemia [Unknown]
